FAERS Safety Report 4751062-3 (Version None)
Quarter: 2005Q3

REPORT INFORMATION
  Report Type: 
  Country: None (occurrence: None)
  Receive Date: 20050822
  Receipt Date: 20050808
  Transmission Date: 20060218
  Serious: Yes (Other)
  Sender: FDA-Public Use
  Company Number: 2005112558

PATIENT
  Sex: Male

DRUGS (1)
  1. GEODON [Suspect]
     Indication: HALLUCINATION, AUDITORY
     Dosage: 220 MG (DAILY),

REACTIONS (2)
  - FALL [None]
  - SUICIDE ATTEMPT [None]
